FAERS Safety Report 4930383-5 (Version None)
Quarter: 2006Q1

REPORT INFORMATION
  Report Type: 
  Country: None (occurrence: None)
  Receive Date: 20060302
  Receipt Date: 20060221
  Transmission Date: 20060701
  Serious: Yes (Hospitalization, Other)
  Sender: FDA-Public Use
  Company Number: CZ-GLAXOSMITHKLINE-B0414057A

PATIENT
  Age: 19 Year
  Sex: Female

DRUGS (3)
  1. LAMOTRIGINE [Suspect]
     Dosage: 50MG PER DAY
     Route: 048
     Dates: end: 20051223
  2. EUTHYROX [Concomitant]
  3. DEPAKENE [Concomitant]

REACTIONS (7)
  - FACE OEDEMA [None]
  - HEPATIC ENZYME INCREASED [None]
  - LEUKOPENIA [None]
  - LYMPHADENOPATHY [None]
  - PYREXIA [None]
  - RASH [None]
  - THROMBOCYTOPENIA [None]
